FAERS Safety Report 20338925 (Version 4)
Quarter: 2022Q1

REPORT INFORMATION
  Report Type: Report from Study
  Country: US (occurrence: US)
  Receive Date: 20220116
  Receipt Date: 20220313
  Transmission Date: 20220423
  Serious: Yes (Other)
  Sender: FDA-Public Use
  Company Number: US-ABBVIE-22K-163-4235135-00

PATIENT
  Age: 65 Year
  Sex: Female

DRUGS (6)
  1. HUMIRA [Suspect]
     Active Substance: ADALIMUMAB
     Indication: Ankylosing spondylitis
     Dosage: CITRATE FREE
     Route: 058
     Dates: end: 202112
  2. HUMIRA [Suspect]
     Active Substance: ADALIMUMAB
     Dosage: CITRATE FREE
     Route: 058
     Dates: end: 2022
  3. SAVELLA [Suspect]
     Active Substance: MILNACIPRAN HYDROCHLORIDE
     Indication: Product used for unknown indication
     Route: 065
  4. MODERNA COVID-19 VACCINE [Concomitant]
     Active Substance: ELASOMERAN
     Indication: COVID-19 immunisation
     Dosage: FIRST DOSE MODERNA
     Route: 030
     Dates: start: 20210105, end: 20210105
  5. MODERNA COVID-19 VACCINE [Concomitant]
     Active Substance: ELASOMERAN
     Dosage: SECOND DOSE MODERNA
     Route: 030
     Dates: start: 20210202, end: 20210202
  6. MODERNA COVID-19 VACCINE [Concomitant]
     Active Substance: ELASOMERAN
     Dosage: THIRD DOSE MODERNA
     Route: 030
     Dates: start: 20210827, end: 20210827

REACTIONS (11)
  - Internal haemorrhage [Recovering/Resolving]
  - Benign breast neoplasm [Recovering/Resolving]
  - Foot fracture [Not Recovered/Not Resolved]
  - Breast mass [Recovering/Resolving]
  - Product administration error [Unknown]
  - Breast conserving surgery [Recovered/Resolved]
  - Osteoporosis [Not Recovered/Not Resolved]
  - Swelling [Recovering/Resolving]
  - Hypersensitivity [Not Recovered/Not Resolved]
  - Pain [Recovering/Resolving]
  - COVID-19 [Recovering/Resolving]

NARRATIVE: CASE EVENT DATE: 20211206
